FAERS Safety Report 14217394 (Version 1)
Quarter: 2020Q3

REPORT INFORMATION
  Report Type: Report from Study
  Country: JP (occurrence: JP)
  Receive Date: 20171123
  Receipt Date: 20171123
  Transmission Date: 20201105
  Serious: Yes (Death, Hospitalization)
  Sender: FDA-Public Use
  Company Number: JP-ASTRAZENECA-2017SE13357

PATIENT
  Age: 22470 Day
  Sex: Male
  Weight: 39.8 kg

DRUGS (11)
  1. TREMELIMUMAB. [Suspect]
     Active Substance: TREMELIMUMAB
     Indication: OESOPHAGEAL CARCINOMA
     Route: 042
     Dates: start: 20161129
  2. ALPHAGAN P [Concomitant]
     Active Substance: BRIMONIDINE TARTRATE
     Indication: INTRAOCULAR PRESSURE INCREASED
     Dosage: PROPER DOSE, 2 PER DAY
     Route: 047
     Dates: start: 20161125
  3. TIMOPTOL [Concomitant]
     Active Substance: TIMOLOL
     Indication: INTRAOCULAR PRESSURE INCREASED
     Dosage: PROPER DOSE, 2 PER DAY
     Route: 047
     Dates: start: 20161125
  4. TSUMURA [Concomitant]
     Indication: PAIN
     Dosage: 2.5 G 3 PER DAY
     Route: 048
     Dates: start: 20161207
  5. NEXIUM [Concomitant]
     Active Substance: ESOMEPRAZOLE MAGNESIUM
     Indication: PROPHYLAXIS OF NAUSEA AND VOMITING
     Route: 048
     Dates: start: 20160808
  6. OXYCONTIN [Concomitant]
     Active Substance: OXYCODONE HYDROCHLORIDE
     Indication: PAIN
     Route: 048
     Dates: start: 20161121
  7. AZOPT [Concomitant]
     Active Substance: BRINZOLAMIDE
     Indication: INTRAOCULAR PRESSURE INCREASED
     Dosage: PROPER DOSE, 2 PER DAY
     Route: 047
     Dates: start: 20161125
  8. LUMIGAN [Concomitant]
     Active Substance: BIMATOPROST
     Indication: INTRAOCULAR PRESSURE INCREASED
     Dosage: PROPER DOSE,  PER DAY
     Route: 047
     Dates: start: 20161125
  9. MEDI4736 [Suspect]
     Active Substance: DURVALUMAB
     Indication: OESOPHAGEAL CARCINOMA
     Route: 042
     Dates: start: 20161129
  10. MAGNESIUM OXIDE. [Concomitant]
     Active Substance: MAGNESIUM OXIDE
     Indication: CONSTIPATION
     Route: 048
     Dates: start: 20161122
  11. CALONAL [Concomitant]
     Active Substance: ACETAMINOPHEN
     Indication: PAIN
     Route: 048
     Dates: start: 20161207

REACTIONS (2)
  - Drug-induced liver injury [Not Recovered/Not Resolved]
  - Interstitial lung disease [Not Recovered/Not Resolved]

NARRATIVE: CASE EVENT DATE: 20170203
